FAERS Safety Report 6768085-5 (Version None)
Quarter: 2010Q2

REPORT INFORMATION
  Report Type: 
  Country: None (occurrence: None)
  Receive Date: 20100614
  Receipt Date: 20100604
  Transmission Date: 20101027
  Serious: Yes (Other)
  Sender: FDA-Public Use
  Company Number: US-JNJFOC-20100602118

PATIENT
  Age: 3 Year
  Sex: Female
  Weight: 10.89 kg

DRUGS (2)
  1. CHILDREN'S TYLENOL SUSPENSION [Suspect]
     Indication: PYREXIA
     Route: 050
  2. CHILDREN'S TYLENOL SUSPENSION [Suspect]
     Indication: NASOPHARYNGITIS
     Route: 050

REACTIONS (3)
  - CONVULSION [None]
  - PRODUCT QUALITY ISSUE [None]
  - PYREXIA [None]
